FAERS Safety Report 8403075-8 (Version None)
Quarter: 2012Q2

REPORT INFORMATION
  Report Type: 
  Country: None (occurrence: None)
  Receive Date: 20120601
  Receipt Date: 20120523
  Transmission Date: 20120825
  Serious: Yes (Death, Hospitalization, Other)
  Sender: FDA-Public Use
  Company Number: PT-BRISTOL-MYERS SQUIBB COMPANY-16565350

PATIENT
  Age: 54 Year
  Sex: Female

DRUGS (1)
  1. YERVOY [Suspect]
     Indication: MALIGNANT MELANOMA
     Dosage: 3MG/KG,RECEIVED 2 DOSES.
     Route: 042
     Dates: start: 20120316, end: 20120409

REACTIONS (5)
  - MUSCULAR WEAKNESS [None]
  - NEOPLASM MALIGNANT [None]
  - TRANSAMINASES INCREASED [None]
  - ARTHRALGIA [None]
  - PNEUMOCOCCAL INFECTION [None]
